FAERS Safety Report 11127171 (Version 2)
Quarter: 2015Q2

REPORT INFORMATION
  Report Type: Spontaneous
  Country: IT (occurrence: IT)
  Receive Date: 20150521
  Receipt Date: 20150608
  Transmission Date: 20150821
  Serious: Yes (Hospitalization, Other)
  Sender: FDA-Public Use
  Company Number: IT-ACCORD-030823

PATIENT
  Age: 79 Year
  Sex: Male

DRUGS (4)
  1. MANIDIPINE/MANIDIPINE HYDROCHLORIDE [Concomitant]
     Indication: HYPERTENSION
  2. DONEPEZIL/DONEPEZIL HYDROCHLORIDE [Suspect]
     Active Substance: DONEPEZIL HYDROCHLORIDE
     Indication: DEMENTIA
     Route: 048
     Dates: start: 20150108, end: 20150129
  3. OLANZAPINE. [Concomitant]
     Active Substance: OLANZAPINE
     Indication: RESTLESSNESS
     Dosage: 2.5 MG WAS READMINISTERED IN THE EVENING
     Route: 048
     Dates: start: 20141023, end: 20150120
  4. CANDESARTAN [Concomitant]
     Active Substance: CANDESARTAN
     Indication: HYPERTENSION

REACTIONS (7)
  - Depressed level of consciousness [Recovered/Resolved]
  - Drop attacks [Recovered/Resolved]
  - Contusion [Recovered/Resolved]
  - Sopor [Recovered/Resolved]
  - Somnolence [Recovered/Resolved]
  - Dehydration [Recovered/Resolved]
  - Fall [None]

NARRATIVE: CASE EVENT DATE: 20150111
